FAERS Safety Report 6551327-9 (Version None)
Quarter: 2010Q1

REPORT INFORMATION
  Report Type: 
  Country: None (occurrence: None)
  Receive Date: 20100126
  Receipt Date: 20100119
  Transmission Date: 20100710
  Serious: Yes (Other)
  Sender: FDA-Public Use
  Company Number: FR-WYE-G03635809

PATIENT
  Sex: Female
  Weight: 100 kg

DRUGS (4)
  1. EFFEXOR [Suspect]
     Indication: DEPRESSION
     Dosage: 100 MG DAILY AND THEN 150 MG DAILY AND THEN 75 MG DAILY FROM MAR-2009
     Route: 048
  2. EFFEXOR [Suspect]
     Indication: ANXIETY
  3. SERESTA [Concomitant]
     Indication: DEPRESSION
     Route: 048
     Dates: start: 20090101
  4. SERESTA [Concomitant]
     Indication: ANXIETY

REACTIONS (2)
  - DRUG EXPOSURE DURING PREGNANCY [None]
  - GESTATIONAL DIABETES [None]
